FAERS Safety Report 7538057-1 (Version None)
Quarter: 2011Q2

REPORT INFORMATION
  Report Type: 
  Country: None (occurrence: None)
  Receive Date: 20110609
  Receipt Date: 20110606
  Transmission Date: 20111010
  Serious: Yes (Other)
  Sender: FDA-Public Use
  Company Number: US-PFIZER INC-HQWYE524104OCT04

PATIENT
  Sex: Female
  Weight: 66 kg

DRUGS (7)
  1. ASACOL [Concomitant]
     Indication: COLITIS ULCERATIVE
     Dosage: UNK
  2. PROVERA [Suspect]
     Indication: HORMONE REPLACEMENT THERAPY
     Dosage: 2.5 MG, UNK
     Route: 048
     Dates: start: 19870304, end: 19950201
  3. PREMARIN [Suspect]
     Indication: HORMONE REPLACEMENT THERAPY
     Dosage: 0.625 MG,
     Route: 048
     Dates: start: 19870304, end: 19960401
  4. PREMARIN [Suspect]
     Dosage: 0.625 MG,
     Route: 048
     Dates: start: 19980101, end: 19991001
  5. MEDROXYPROGESTERONE ACETATE [Suspect]
     Indication: HORMONE REPLACEMENT THERAPY
     Dosage: 2.5 MG, UNK
     Dates: start: 19950201, end: 19960401
  6. MEDROXYPROGESTERONE ACETATE [Suspect]
     Dosage: 2.5 MG, UNK
     Dates: start: 19980101, end: 19991001
  7. PREMPRO [Suspect]
     Indication: HORMONE REPLACEMENT THERAPY
     Dosage: 0.625/2.5 MG
     Route: 048
     Dates: start: 19960401, end: 19980101

REACTIONS (1)
  - BREAST CANCER METASTATIC [None]
